FAERS Safety Report 4678569-1 (Version None)
Quarter: 2005Q2

REPORT INFORMATION
  Report Type: 
  Country: None (occurrence: None)
  Receive Date: 20050531
  Receipt Date: 20050531
  Transmission Date: 20051028
  Serious: Yes (Disabling)
  Sender: FDA-Public Use
  Company Number: None

PATIENT
  Sex: Female

DRUGS (1)
  1. AREDIA [Suspect]
     Indication: HYPERCALCAEMIA OF MALIGNANCY
     Dates: start: 20020601, end: 20040601

REACTIONS (7)
  - ALVEOLOPLASTY [None]
  - JAW DISORDER [None]
  - OSTEONECROSIS [None]
  - PAIN [None]
  - POSITRON EMISSION TOMOGRAM ABNORMAL [None]
  - TOOTH EXTRACTION [None]
  - TOOTH INFECTION [None]
